FAERS Safety Report 8297104-2 (Version None)
Quarter: 2012Q2

REPORT INFORMATION
  Report Type: 
  Country: None (occurrence: None)
  Receive Date: 20120416
  Receipt Date: 20120330
  Transmission Date: 20120825
  Serious: Yes (Other)
  Sender: FDA-Public Use
  Company Number: DSA_56120_2012

PATIENT
  Sex: Female

DRUGS (17)
  1. ANZEMET [Concomitant]
  2. AMOXICILLIN [Concomitant]
  3. LEVAQUIN [Concomitant]
  4. PAXIL [Concomitant]
  5. NEXIUM [Concomitant]
  6. ZITHROMAX [Concomitant]
  7. AUGMENTIN '125' [Concomitant]
  8. ELIDEL [Suspect]
     Indication: ALOPECIA
     Dosage: DF TOPICAL
     Route: 061
     Dates: start: 20020301
  9. CELEXA [Concomitant]
  10. COMPAZINE [Concomitant]
  11. FAMOTIDINE [Concomitant]
  12. SYNTHROID [Concomitant]
  13. RADIATION THERAPY [Concomitant]
  14. COUMADIN [Concomitant]
  15. PAROXETINE [Concomitant]
  16. HYDROCODONE BITARTRATE [Concomitant]
  17. OXYCODONE HCL AND ACETAMINOPHEN [Concomitant]

REACTIONS (20)
  - HODGKIN'S DISEASE [None]
  - HOT FLUSH [None]
  - ABORTION SPONTANEOUS [None]
  - JUGULAR VEIN THROMBOSIS [None]
  - NEUTROPENIA [None]
  - ANXIETY [None]
  - HYPOTHYROIDISM [None]
  - HYPERHIDROSIS [None]
  - TRICUSPID VALVE INCOMPETENCE [None]
  - POSTPARTUM DEPRESSION [None]
  - DEPRESSION [None]
  - RENAL CYST [None]
  - FATIGUE [None]
  - TEMPERATURE INTOLERANCE [None]
  - MUCOSAL INFLAMMATION [None]
  - PULMONARY VALVE INCOMPETENCE [None]
  - MENSTRUATION IRREGULAR [None]
  - PHARYNGITIS STREPTOCOCCAL [None]
  - PREGNANCY [None]
  - MATERNAL EXPOSURE DURING PREGNANCY [None]
